FAERS Safety Report 9390370 (Version 3)
Quarter: 2016Q1

REPORT INFORMATION
  Report Type: Spontaneous
  Country: FR (occurrence: FR)
  Receive Date: 20130709
  Receipt Date: 20160311
  Transmission Date: 20160526
  Serious: Yes (Hospitalization)
  Sender: FDA-Public Use
  Company Number: FR-BRISTOL-MYERS SQUIBB COMPANY-19055243

PATIENT
  Age: 63 Year
  Sex: Female

DRUGS (2)
  1. HYDREA [Suspect]
     Active Substance: HYDROXYUREA
     Indication: PRODUCT USED FOR UNKNOWN INDICATION
     Dosage: 5 OUT OF 7 D
     Route: 065
     Dates: start: 20130424, end: 20130507
  2. DIPHTHERIA+TETANUS+PERTUSSIS+POLIOMYELITIS [Suspect]
     Active Substance: DIPHTHERIA AND TETANUS TOXOIDS AND ACELLULAR PERTUSSIS ADSORBED AND INACTIVATED POLIOVIRUS VACCINE
     Indication: PRODUCT USED FOR UNKNOWN INDICATION
     Dosage: 1 DOSE
     Route: 030
     Dates: start: 20130407

REACTIONS (2)
  - Off label use [Unknown]
  - Prurigo [Recovered/Resolved]

NARRATIVE: CASE EVENT DATE: 20130504
